FAERS Safety Report 8229563-5 (Version None)
Quarter: 2012Q1

REPORT INFORMATION
  Report Type: 
  Country: None (occurrence: None)
  Receive Date: 20120322
  Receipt Date: 20120314
  Transmission Date: 20120608
  Serious: Yes (Hospitalization)
  Sender: FDA-Public Use
  Company Number: GB-FRI-1000029237

PATIENT
  Sex: Male

DRUGS (6)
  1. MEMANTINE [Suspect]
     Indication: DEMENTIA ALZHEIMER'S TYPE
     Dosage: TITRATED UP TO 20 MG DAILY
     Route: 048
     Dates: start: 20111117
  2. MEMANTINE [Suspect]
     Dosage: 20 MG
     Route: 048
     Dates: end: 20120229
  3. DONEPEZIL HCL [Concomitant]
     Dates: start: 20090201
  4. CITALOPRAM HYDROBROMIDE [Concomitant]
     Dosage: 20 MG
     Route: 048
  5. MEMANTINE [Suspect]
     Route: 048
     Dates: start: 20120301
  6. CLOBAZAM [Concomitant]
     Indication: EPILEPSY
     Dosage: 20 MG

REACTIONS (3)
  - ATRIAL FIBRILLATION [None]
  - CIRCULATORY COLLAPSE [None]
  - BRADYCARDIA [None]
